FAERS Safety Report 9995331 (Version 2)
Quarter: 2014Q1

REPORT INFORMATION
  Report Type: Spontaneous
  Country: IT (occurrence: IT)
  Receive Date: 20140311
  Receipt Date: 20140317
  Transmission Date: 20141002
  Serious: Yes (Hospitalization)
  Sender: FDA-Public Use
  Company Number: IT-TEVA-465932ISR

PATIENT
  Age: 71 Year
  Sex: Male

DRUGS (4)
  1. CISPLATIN [Suspect]
     Indication: PLEURAL MESOTHELIOMA MALIGNANT
     Dosage: 1 DOSAGE FORMS DAILY;
     Route: 042
     Dates: start: 20130522, end: 20130522
  2. ALIMTA - ELI LILLY NEDERLAND BV [Suspect]
     Indication: PLEURAL MESOTHELIOMA MALIGNANT
     Dosage: 1 DOSAGE FORMS DAILY;
     Route: 042
     Dates: start: 20130522, end: 20130522
  3. GASTROGEL [Concomitant]
     Indication: PRODUCT USED FOR UNKNOWN INDICATION
  4. PANTORC [Concomitant]
     Indication: PRODUCT USED FOR UNKNOWN INDICATION

REACTIONS (5)
  - Anaemia [Not Recovered/Not Resolved]
  - Epistaxis [Not Recovered/Not Resolved]
  - Petechiae [Not Recovered/Not Resolved]
  - Thrombocytopenia [Not Recovered/Not Resolved]
  - Off label use [Unknown]
